FAERS Safety Report 18490183 (Version 1)
Quarter: 2020Q4

REPORT INFORMATION
  Report Type: Spontaneous
  Country: BR (occurrence: BR)
  Receive Date: 20201111
  Receipt Date: 20201111
  Transmission Date: 20210114
  Serious: Yes (Other)
  Sender: FDA-Public Use
  Company Number: BR-AMGEN-BRASP2020182114

PATIENT
  Age: 43 Year
  Sex: Female

DRUGS (5)
  1. TOPIRAMATO [Suspect]
     Active Substance: TOPIRAMATE
     Indication: PRODUCT USED FOR UNKNOWN INDICATION
     Dosage: 25 MILLIGRAM (SINGLE TABLET)
     Route: 065
  2. ERENUMAB [Suspect]
     Active Substance: ERENUMAB
     Dosage: UNK (STARTED ON 15 SEP)
     Route: 065
  3. ERENUMAB [Suspect]
     Active Substance: ERENUMAB
     Dosage: UNK (STARTED ON 13 AUG)
     Route: 065
  4. ERENUMAB [Suspect]
     Active Substance: ERENUMAB
     Dosage: UNK (STARTED ON 13 OCT)
     Route: 065
  5. ERENUMAB [Suspect]
     Active Substance: ERENUMAB
     Indication: MIGRAINE
     Dosage: 70 MILLIGRAM (STARTED ON 15 JUL)
     Route: 058

REACTIONS (2)
  - Pain [Recovered/Resolved]
  - Malaise [Unknown]
